FAERS Safety Report 8815493 (Version 1)
Quarter: 2012Q4

REPORT INFORMATION
  Report Type: 
  Country: FR (occurrence: FR)
  Receive Date: 20120928
  Receipt Date: 20120928
  Transmission Date: 20130627
  Serious: Yes (Other)
  Sender: FDA-Public Use
  Company Number: FR-GLAXOSMITHKLINE-B0831966A

PATIENT
  Sex: Male

DRUGS (4)
  1. IMIJECT [Suspect]
     Indication: CLUSTER HEADACHE
     Dosage: 6MG Eight times per day
     Route: 058
     Dates: start: 2001
  2. ISOPTINE [Concomitant]
     Dosage: 840MG per day
     Route: 065
  3. EFFEXOR [Concomitant]
     Dosage: 75MG per day
     Route: 065
  4. EPITOMAX [Concomitant]
     Dosage: 100MG per day
     Route: 065

REACTIONS (3)
  - Venous thrombosis [Unknown]
  - Hypogammaglobulinaemia [Unknown]
  - Overdose [Unknown]
